FAERS Safety Report 9908072 (Version 1)
Quarter: 2014Q1

REPORT INFORMATION
  Report Type: Report from Study
  Country: US (occurrence: US)
  Receive Date: 20140219
  Receipt Date: 20140219
  Transmission Date: 20141002
  Serious: Yes (Death)
  Sender: FDA-Public Use
  Company Number: US-ROCHE-1323719

PATIENT
  Age: 52 Year
  Sex: Female
  Weight: 53.12 kg

DRUGS (5)
  1. AVASTIN [Suspect]
     Indication: OVARIAN CANCER
     Route: 065
     Dates: start: 20111122
  2. KYTRIL [Suspect]
     Indication: PRODUCT USED FOR UNKNOWN INDICATION
     Route: 065
     Dates: start: 20111108
  3. GEMZAR [Concomitant]
     Route: 065
     Dates: start: 20111108
  4. NEULASTA [Concomitant]
     Route: 065
     Dates: start: 20111014
  5. DECADRON [Concomitant]
     Route: 065
     Dates: start: 20111108

REACTIONS (2)
  - Disease progression [Fatal]
  - Off label use [Unknown]
